FAERS Safety Report 10219260 (Version 1)
Quarter: 2014Q2

REPORT INFORMATION
  Report Type: Spontaneous
  Country: US (occurrence: None)
  Receive Date: 20140604
  Receipt Date: 20140604
  Transmission Date: 20141212
  Serious: Yes (Other)
  Sender: FDA-Public Use
  Company Number: None

PATIENT
  Age: 81 Year
  Sex: Male

DRUGS (1)
  1. INTRON A [Suspect]
     Indication: CHRONIC HEPATITIS C
     Dates: start: 20140507

REACTIONS (6)
  - Pyrexia [None]
  - Headache [None]
  - Formication [None]
  - Cognitive disorder [None]
  - Drug dispensing error [None]
  - Incorrect dose administered [None]
